FAERS Safety Report 9672427 (Version 1)
Quarter: 2013Q4

REPORT INFORMATION
  Report Type: Spontaneous
  Country: IE (occurrence: IE)
  Receive Date: 20131106
  Receipt Date: 20131106
  Transmission Date: 20140711
  Serious: Yes (Other)
  Sender: FDA-Public Use
  Company Number: IE-ROCHE-1298529

PATIENT
  Sex: Male

DRUGS (1)
  1. LUCENTIS [Suspect]
     Indication: PRODUCT USED FOR UNKNOWN INDICATION
     Route: 050

REACTIONS (2)
  - Detachment of retinal pigment epithelium [Unknown]
  - Retinal pigment epithelial tear [Unknown]
